FAERS Safety Report 4589487-1 (Version None)
Quarter: 2005Q1

REPORT INFORMATION
  Report Type: 
  Country: None (occurrence: None)
  Receive Date: 20050216
  Receipt Date: 20050201
  Transmission Date: 20050727
  Serious: Yes (Hospitalization)
  Sender: FDA-Public Use
  Company Number: GXKR2005IT00526

PATIENT
  Age: 73 Year
  Sex: Female

DRUGS (4)
  1. TICLOPIDINE HCL [Suspect]
     Indication: ANTICOAGULANT THERAPY
     Dosage: 250 MG
  2. GLIQUIDONE (GLIQUIDONE) [Concomitant]
  3. MANIDIPINE (MANIDIPINE) [Concomitant]
  4. DOXAZOSIN MESYLATE [Concomitant]

REACTIONS (7)
  - ALANINE AMINOTRANSFERASE INCREASED [None]
  - ASPARTATE AMINOTRANSFERASE INCREASED [None]
  - BLOOD ALKALINE PHOSPHATASE INCREASED [None]
  - CHOLESTASIS [None]
  - GAMMA-GLUTAMYLTRANSFERASE INCREASED [None]
  - JAUNDICE CHOLESTATIC [None]
  - PRURITUS [None]
